FAERS Safety Report 16976802 (Version 3)
Quarter: 2020Q1

REPORT INFORMATION
  Report Type: Report from Study
  Country: CO (occurrence: CO)
  Receive Date: 20191030
  Receipt Date: 20200114
  Transmission Date: 20200409
  Serious: Yes (Death, Hospitalization)
  Sender: FDA-Public Use
  Company Number: PHHY2019CO189335

PATIENT
  Sex: Female

DRUGS (1)
  1. TASIGNA [Suspect]
     Active Substance: NILOTINIB
     Indication: CHRONIC MYELOID LEUKAEMIA
     Dosage: 800 MG, QD
     Route: 048

REACTIONS (7)
  - Inappropriate schedule of product administration [Unknown]
  - Feeling abnormal [Unknown]
  - Drug ineffective [Unknown]
  - Chronic myeloid leukaemia recurrent [Unknown]
  - Haemoglobin decreased [Unknown]
  - Blast crisis in myelogenous leukaemia [Fatal]
  - Investigation abnormal [Unknown]
